FAERS Safety Report 9641422 (Version 2)
Quarter: 2013Q4

REPORT INFORMATION
  Report Type: Spontaneous
  Country: US (occurrence: US)
  Receive Date: 20131023
  Receipt Date: 20131023
  Transmission Date: 20140711
  Serious: No
  Sender: FDA-Public Use
  Company Number: US-ABBVIE-13P-163-1145033-00

PATIENT
  Age: 43 Year
  Sex: Female
  Weight: 67.65 kg

DRUGS (2)
  1. LUPRON DEPOT [Suspect]
     Indication: PRODUCT USED FOR UNKNOWN INDICATION
     Dates: start: 20120424
  2. LEVOTHYROXINE [Concomitant]
     Indication: HYPOTHYROIDISM

REACTIONS (3)
  - Weight increased [Not Recovered/Not Resolved]
  - Hirsutism [Not Recovered/Not Resolved]
  - Depression [Not Recovered/Not Resolved]
